FAERS Safety Report 5674656-X (Version None)
Quarter: 2008Q1

REPORT INFORMATION
  Report Type: 
  Country: None (occurrence: None)
  Receive Date: 20080320
  Receipt Date: 20080314
  Transmission Date: 20080703
  Serious: Yes (Death)
  Sender: FDA-Public Use
  Company Number: A0715512A

PATIENT
  Age: 44 Year
  Sex: Female

DRUGS (16)
  1. ZOFRAN [Suspect]
     Indication: PROPHYLAXIS OF NAUSEA AND VOMITING
     Dosage: 8MG THREE TIMES PER DAY
     Route: 048
  2. CHANTIX [Concomitant]
  3. TRAZODONE HCL [Concomitant]
  4. PROMETHAZINE [Concomitant]
  5. GABACET [Concomitant]
  6. PREVACID [Concomitant]
  7. ACETAMINOPHEN AND HYDROCODONE BITARTRATE [Concomitant]
  8. PROVIGIL [Concomitant]
  9. TEMACETAM [Concomitant]
  10. CLONAZEPAM [Concomitant]
  11. ZOLPIDEM [Concomitant]
  12. MIRTAZAPINE [Concomitant]
  13. RISPERDAL [Concomitant]
  14. METHOBAM [Concomitant]
  15. LITHIUM CARBONATE [Concomitant]
  16. ASTELIN [Concomitant]

REACTIONS (2)
  - DEATH [None]
  - DRUG INTERACTION [None]
